FAERS Safety Report 4729449-4 (Version None)
Quarter: 2005Q3

REPORT INFORMATION
  Report Type: 
  Country: None (occurrence: None)
  Receive Date: 20050728
  Receipt Date: 20050704
  Transmission Date: 20060218
  Serious: Yes (Death, Life-Threatening, Hospitalization)
  Sender: FDA-Public Use
  Company Number: 05GER0140

PATIENT
  Age: 80 Year
  Sex: Female

DRUGS (7)
  1. AGGRASTAT [Suspect]
     Indication: ARTERIAL STENOSIS
     Dosage: 10 ML/H
     Dates: start: 20050703, end: 20050703
  2. HEPARIN [Concomitant]
  3. ATORVASTATIN CALCIUM [Concomitant]
  4. ASPIRIN [Concomitant]
  5. CLOPIDOGREL BISULFATE (CLOPIDOGREL SULFATE0 [Concomitant]
  6. GLIMEPIRIDE (GLIMEPIRIDE0 [Concomitant]
  7. DIGITOXIN (DIGOTOXIN) [Concomitant]

REACTIONS (2)
  - CEREBRAL HAEMORRHAGE [None]
  - THROMBOCYTOPENIA [None]
